FAERS Safety Report 14767359 (Version 1)
Quarter: 2018Q2

REPORT INFORMATION
  Report Type: Spontaneous
  Country: JP (occurrence: JP)
  Receive Date: 20180417
  Receipt Date: 20180417
  Transmission Date: 20180711
  Serious: Yes (Hospitalization)
  Sender: FDA-Public Use
  Company Number: JP-ROCHE-2096908

PATIENT
  Age: 81 Year
  Sex: Male
  Weight: 52 kg

DRUGS (6)
  1. LOTRIGA [Concomitant]
     Active Substance: OMEGA-3-ACID ETHYL ESTERS
     Dosage: DOSAGE IS UNCERTAIN.
     Route: 065
     Dates: start: 20170718
  2. CRESTOR [Concomitant]
     Active Substance: ROSUVASTATIN CALCIUM
     Dosage: DOSAGE IS UNCERTAIN.
     Route: 065
     Dates: start: 20170718, end: 20180302
  3. TENELIA [Concomitant]
     Active Substance: TENELIGLIPTIN
     Dosage: DOSAGE IS UNCERTAIN.
     Route: 065
     Dates: start: 20180215
  4. BAYASPIRIN [Suspect]
     Active Substance: ASPIRIN
     Indication: PRODUCT USED FOR UNKNOWN INDICATION
     Dosage: MOST RECENT DOSE ADMINISTERED ON 23/MAR/2018
     Route: 048
     Dates: start: 20171205
  5. PLETAAL [Concomitant]
     Active Substance: CILOSTAZOL
     Dosage: DOSAGE IS UNCERTAIN.
     Route: 065
     Dates: start: 20170818
  6. ACTEMRA [Suspect]
     Active Substance: TOCILIZUMAB
     Indication: RHEUMATOID ARTHRITIS
     Dosage: ON 24/JAN/2018, MOST RECENT DOSE OF TOCILIZUMAB ADMINISTERED.
     Route: 041
     Dates: start: 20171227

REACTIONS (1)
  - Eosinophil count increased [Recovering/Resolving]

NARRATIVE: CASE EVENT DATE: 20180115
